FAERS Safety Report 5106426-5 (Version None)
Quarter: 2006Q3

REPORT INFORMATION
  Report Type: 
  Country: None (occurrence: None)
  Receive Date: 20060918
  Receipt Date: 20060804
  Transmission Date: 20061208
  Serious: Yes (Hospitalization)
  Sender: FDA-Public Use
  Company Number: FR-ROCHE-458600

PATIENT
  Age: 44 Year
  Sex: Female

DRUGS (9)
  1. PEGASYS [Suspect]
     Indication: HEPATITIS C
     Dosage: FORM REPORTED AS INJECTABLE SOLUTION. ACCORDING TO AFSSAPS STARTED ON 03 JUNE 2006.
     Route: 058
     Dates: start: 20060302
  2. COPEGUS [Interacting]
     Indication: HEPATITIS C
     Dosage: ACCORDING TO AFSSAPS STARTED ON 03 JUNE 2006.
     Route: 065
     Dates: start: 20060301, end: 20060718
  3. COPEGUS [Interacting]
     Route: 065
     Dates: start: 20060718, end: 20060803
  4. SUSTIVA [Suspect]
     Indication: DRUG USE FOR UNKNOWN INDICATION
     Dosage: WAS REPORTED AS SUSTIVA 600. TAKEN ONE DOSE IN THE EVENING. ACCORDING TO AFSSAPS STARTED ON 03 JUNE+
     Route: 048
     Dates: start: 20060101
  5. EPIVIR [Suspect]
     Indication: DRUG USE FOR UNKNOWN INDICATION
     Dosage: WAS REPORTED AS EPIVIR 300.
     Route: 048
     Dates: start: 20060101, end: 20060718
  6. VIDEX [Suspect]
     Indication: DRUG USE FOR UNKNOWN INDICATION
     Dosage: WAS REPORTED AS VIDEX 250.
     Route: 048
     Dates: start: 20060101, end: 20060718
  7. ICAZ LP [Concomitant]
     Dosage: WAS REPORTED AS ICAZ LP5. TAKEN IN THE EVENING.
  8. PRETERAX [Concomitant]
     Dosage: TAKEN IN THE EVENING.
  9. ZELITREX [Concomitant]
     Indication: HERPES ZOSTER
     Dosage: FRIST TAKEN SIX DOSE FORMS PER DAY, THEN TAKEN ONE DOSE IN THE MORNING, ONE DOSE AT LUNCH TIME, AND+

REACTIONS (10)
  - ANOREXIA [None]
  - ASTHENIA [None]
  - BONE MARROW DISORDER [None]
  - CARDIAC MURMUR [None]
  - DRUG INTERACTION [None]
  - GENERAL PHYSICAL HEALTH DETERIORATION [None]
  - LEUKOPENIA [None]
  - NORMOCHROMIC NORMOCYTIC ANAEMIA [None]
  - THROMBOCYTOPENIA [None]
  - WEIGHT DECREASED [None]
